FAERS Safety Report 17106084 (Version 1)
Quarter: 2019Q4

REPORT INFORMATION
  Report Type: Spontaneous
  Country: FR (occurrence: FR)
  Receive Date: 20191203
  Receipt Date: 20191203
  Transmission Date: 20200122
  Serious: Yes (Death, Hospitalization)
  Sender: FDA-Public Use
  Company Number: FR-PFIZER INC-2019506715

PATIENT
  Age: 84 Year
  Sex: Male
  Weight: 76 kg

DRUGS (5)
  1. XARELTO [Concomitant]
     Active Substance: RIVAROXABAN
     Dosage: 20 MG, UNK
  2. TAFAMIDIS MEGLUMINE [Suspect]
     Active Substance: TAFAMIDIS MEGLUMINE
     Indication: CARDIAC AMYLOIDOSIS
     Dosage: 20 MG, DAILY
     Dates: end: 201908
  3. LASILIX [FUROSEMIDE] [Concomitant]
     Active Substance: FUROSEMIDE
     Dosage: 40 MG, UNK
  4. TAHOR [Concomitant]
     Active Substance: ATORVASTATIN CALCIUM
     Dosage: 40 MG, UNK
  5. APROVEL [Concomitant]
     Active Substance: IRBESARTAN
     Dosage: 300 MG, UNK

REACTIONS (7)
  - Off label use [Unknown]
  - Product use in unapproved indication [Unknown]
  - Metastases to liver [Fatal]
  - Cardiac amyloidosis [Fatal]
  - Jaundice cholestatic [Fatal]
  - Adenocarcinoma gastric [Fatal]
  - Disease progression [Fatal]
